FAERS Safety Report 10073086 (Version 2)
Quarter: 2014Q3

REPORT INFORMATION
  Report Type: Spontaneous
  Country: US (occurrence: US)
  Receive Date: 20140411
  Receipt Date: 20140701
  Transmission Date: 20150326
  Serious: No
  Sender: FDA-Public Use
  Company Number: US-009507513-1404USA004553

PATIENT
  Age: 64 Year
  Sex: Female
  Weight: 63.49 kg

DRUGS (3)
  1. AMLODIPINE [Concomitant]
     Active Substance: AMLODIPINE BESYLATE
     Indication: HYPERTENSION
     Dosage: UNK, UNKNOWN
  2. OXYTROL FOR WOMEN [Suspect]
     Active Substance: OXYBUTYNIN
     Indication: URGE INCONTINENCE
     Dosage: UNK, UNKNOWN
     Route: 062
     Dates: start: 20140214, end: 20140414
  3. METOPROLOL [Concomitant]
     Active Substance: METOPROLOL
     Indication: HYPERTENSION
     Dosage: UNK, UNKNOWN

REACTIONS (4)
  - Rash [Unknown]
  - Pruritus [Unknown]
  - Skin reaction [Recovered/Resolved]
  - Erythema [Unknown]

NARRATIVE: CASE EVENT DATE: 2014
